FAERS Safety Report 5833658-0 (Version None)
Quarter: 2008Q3

REPORT INFORMATION
  Report Type: 
  Country: None (occurrence: None)
  Receive Date: 20080805
  Receipt Date: 20080724
  Transmission Date: 20090109
  Serious: No
  Sender: FDA-Public Use
  Company Number: AU-ASTRAZENECA-2008AP05693

PATIENT
  Age: 55 Year
  Sex: Female

DRUGS (2)
  1. SEROQUEL [Suspect]
     Indication: DEPRESSION
     Dosage: THERAPY RESTARTED AT A LOWER DOSE
     Route: 048
     Dates: start: 20060815, end: 20070815
  2. PROZAC [Suspect]
     Indication: DEPRESSION
     Route: 048
     Dates: start: 20060815

REACTIONS (1)
  - NEUTROPENIA [None]
